FAERS Safety Report 5017995-8 (Version None)
Quarter: 2006Q2

REPORT INFORMATION
  Report Type: 
  Country: None (occurrence: None)
  Receive Date: 20060605
  Receipt Date: 20060529
  Transmission Date: 20061013
  Serious: Yes (Life-Threatening, Hospitalization)
  Sender: FDA-Public Use
  Company Number: US-KINGPHARMUSA00001-K200600697

PATIENT
  Age: 80 Year
  Sex: Male

DRUGS (4)
  1. ALTACE [Suspect]
     Dosage: 5 MG, QD
     Route: 048
     Dates: end: 20060218
  2. ALDACTONE [Suspect]
     Dosage: 25 MG, QD
     Route: 048
     Dates: end: 20060218
  3. ISOPTIN [Concomitant]
     Dosage: 240 MG, QD
     Route: 048
     Dates: end: 20060218
  4. LASILIX [Concomitant]
     Dosage: 40 MG, QD
     Route: 048

REACTIONS (8)
  - ATRIOVENTRICULAR BLOCK COMPLETE [None]
  - BRONCHITIS [None]
  - CONVULSION [None]
  - HYPERKALAEMIA [None]
  - LOSS OF CONSCIOUSNESS [None]
  - MALAISE [None]
  - RENAL FAILURE ACUTE [None]
  - SYNCOPE [None]
